FAERS Safety Report 8101354 (Version 2)
Quarter: 2013Q1

REPORT INFORMATION
  Report Type: Spontaneous
  Country: VE (occurrence: VE)
  Receive Date: 20110823
  Receipt Date: 20130314
  Transmission Date: 20140127
  Serious: Yes (Hospitalization)
  Sender: FDA-Public Use
  Company Number: PHHY2011VE72964

PATIENT
  Age: 60 Year
  Sex: Female

DRUGS (5)
  1. ACLASTA [Suspect]
     Indication: OSTEOPOROSIS
     Dosage: 5 MG, UNK
     Route: 042
     Dates: start: 20110427
  2. ACLASTA [Suspect]
     Dosage: 5 MG, UNK
     Route: 042
     Dates: start: 20120509
  3. FORADILE [Suspect]
     Indication: BRONCHIECTASIS
     Dosage: UNK UKN, QD
  4. SILDENAFIL [Concomitant]
     Indication: CARDIAC DISORDER
     Dosage: UNK MG, QD
     Route: 048
  5. CALCIUM [Concomitant]
     Indication: OSTEOPOROSIS
     Dosage: UNK MG, QD
     Dates: start: 2009

REACTIONS (3)
  - Respiratory disorder [Recovering/Resolving]
  - Gait disturbance [Recovering/Resolving]
  - Bone density abnormal [Unknown]
